FAERS Safety Report 15933739 (Version 1)
Quarter: 2019Q1

REPORT INFORMATION
  Report Type: Report from Study
  Country: CN (occurrence: CN)
  Receive Date: 20190207
  Receipt Date: 20190207
  Transmission Date: 20190417
  Serious: Yes (Other)
  Sender: FDA-Public Use
  Company Number: CN-JNJFOC-20190140961

PATIENT

DRUGS (4)
  1. VINORELBINE [Suspect]
     Active Substance: VINORELBINE\VINORELBINE TARTRATE
     Indication: PRIMARY MEDIASTINAL LARGE B-CELL LYMPHOMA REFRACTORY
     Route: 065
  2. DECITABINE. [Suspect]
     Active Substance: DECITABINE
     Indication: PRIMARY MEDIASTINAL LARGE B-CELL LYMPHOMA REFRACTORY
     Dosage: DAY -1 TO -5, PER 3 WEEKS
     Route: 042
  3. DOXORUBICIN [Suspect]
     Active Substance: DOXORUBICIN
     Indication: PRIMARY MEDIASTINAL LARGE B-CELL LYMPHOMA REFRACTORY
     Route: 065
  4. GEMCITABINE [Suspect]
     Active Substance: GEMCITABINE\GEMCITABINE HYDROCHLORIDE
     Indication: PRIMARY MEDIASTINAL LARGE B-CELL LYMPHOMA REFRACTORY
     Route: 065

REACTIONS (3)
  - Product use in unapproved indication [Unknown]
  - Off label use [Unknown]
  - Haematotoxicity [Unknown]
